FAERS Safety Report 10979354 (Version 1)
Quarter: 2015Q2

REPORT INFORMATION
  Report Type: Spontaneous
  Country: US (occurrence: US)
  Receive Date: 20150402
  Receipt Date: 20150402
  Transmission Date: 20150821
  Serious: No
  Sender: FDA-Public Use
  Company Number: US-BAYER-2015-097044

PATIENT
  Age: 90 Year
  Sex: Female
  Weight: 81.63 kg

DRUGS (5)
  1. FISH OIL [Concomitant]
     Active Substance: FISH OIL
     Dosage: UNK
  2. ALEVE [Suspect]
     Active Substance: NAPROXEN SODIUM
     Indication: MUSCULOSKELETAL STIFFNESS
     Dosage: 1 DF, PRN
     Route: 048
     Dates: start: 2014
  3. VITAMIN E [Concomitant]
     Active Substance: .ALPHA.-TOCOPHEROL
     Dosage: UNK
  4. OMEGA 3 [Concomitant]
     Active Substance: OMEGA-3 FATTY ACIDS
     Dosage: UNK
  5. VITAMIN D [Concomitant]
     Active Substance: CHOLECALCIFEROL
     Dosage: UNK

REACTIONS (1)
  - Medication error [None]

NARRATIVE: CASE EVENT DATE: 2014
